FAERS Safety Report 6198318-8 (Version None)
Quarter: 2009Q2

REPORT INFORMATION
  Report Type: 
  Country: None (occurrence: None)
  Receive Date: 20090519
  Receipt Date: 20090505
  Transmission Date: 20091009
  Serious: Yes (Hospitalization)
  Sender: FDA-Public Use
  Company Number: 2008AL007364

PATIENT
  Age: 67 Year
  Sex: Male

DRUGS (21)
  1. DIGOXIN [Suspect]
     Indication: CARDIAC DISORDER
     Dosage: 0.25MG, DAILY, PO
     Route: 048
  2. ASPIRIN [Concomitant]
  3. ATORVASTATIN CALCIUM [Concomitant]
  4. CARVEDILOL [Concomitant]
  5. CLOPIDOGREL [Concomitant]
  6. METFORMIN HCL [Concomitant]
  7. FUROSEMIDE [Concomitant]
  8. PLAVIX [Concomitant]
  9. GIMEPIRIDE [Concomitant]
  10. LISINOPRIL [Concomitant]
  11. SPIRONOLACTONE [Concomitant]
  12. PREDNISONE [Concomitant]
  13. LIPITOR [Concomitant]
  14. COREG [Concomitant]
  15. METOCLOPRAMIDE [Concomitant]
  16. FOLIC ACID [Concomitant]
  17. LANTUS [Concomitant]
  18. CEPHALEXIN [Concomitant]
  19. LEVAQUIN [Concomitant]
  20. ENDOCET [Concomitant]
  21. ASCENSIA [Concomitant]

REACTIONS (13)
  - ANOREXIA [None]
  - ASTHENIA [None]
  - CARDIAC MURMUR [None]
  - CARDIOACTIVE DRUG LEVEL ABOVE THERAPEUTIC [None]
  - FATIGUE [None]
  - HALO VISION [None]
  - HEART RATE INCREASED [None]
  - HYPOTENSION [None]
  - NAUSEA [None]
  - THERAPEUTIC AGENT TOXICITY [None]
  - VISION BLURRED [None]
  - VOMITING [None]
  - WEIGHT DECREASED [None]
